FAERS Safety Report 7522214-4 (Version None)
Quarter: 2011Q2

REPORT INFORMATION
  Report Type: 
  Country: None (occurrence: None)
  Receive Date: 20110603
  Receipt Date: 20110317
  Transmission Date: 20111010
  Serious: No
  Sender: FDA-Public Use
  Company Number: US-BAYER-2011-027388

PATIENT
  Age: 84 Year
  Sex: Male
  Weight: 93 kg

DRUGS (5)
  1. ALEVE (CAPLET) [Suspect]
     Dosage: 1 DF, QD
     Route: 048
  2. ASPIRIN [Concomitant]
  3. VITAMIN D [Concomitant]
  4. AVALIDE [Concomitant]
  5. FINASTERIDE [Concomitant]

REACTIONS (3)
  - ERYTHEMA [None]
  - PARAESTHESIA ORAL [None]
  - OEDEMA PERIPHERAL [None]
